FAERS Safety Report 10516259 (Version 1)
Quarter: 2014Q4

REPORT INFORMATION
  Report Type: Spontaneous
  Country: US (occurrence: None)
  Receive Date: 20141010
  Receipt Date: 20141010
  Transmission Date: 20150528
  Serious: Yes (Disabling)
  Sender: FDA-Public Use
  Company Number: None

PATIENT
  Age: 8 Year
  Sex: Male
  Weight: 28.12 kg

DRUGS (1)
  1. METHYLPHENIDATE ER 36 MG [Suspect]
     Active Substance: METHYLPHENIDATE
     Indication: ATTENTION DEFICIT/HYPERACTIVITY DISORDER
     Dosage: 1 CAPSULE
     Route: 048
     Dates: start: 20141001, end: 20141001

REACTIONS (7)
  - Educational problem [None]
  - Crying [None]
  - Victim of abuse [None]
  - Product substitution issue [None]
  - Product quality issue [None]
  - No therapeutic response [None]
  - Product formulation issue [None]

NARRATIVE: CASE EVENT DATE: 20141009
